FAERS Safety Report 24351132 (Version 1)
Quarter: 2024Q3

REPORT INFORMATION
  Report Type: Report from Study
  Country: CY (occurrence: CY)
  Receive Date: 20240923
  Receipt Date: 20240923
  Transmission Date: 20241017
  Serious: No
  Sender: ROCHE
  Company Number: CY-ROCHE-2914026

PATIENT
  Age: 36 Year
  Sex: Female
  Weight: 74.0 kg

DRUGS (15)
  1. HERCEPTIN [Suspect]
     Active Substance: TRASTUZUMAB
     Indication: HER2 positive breast cancer
     Route: 042
     Dates: start: 20171229
  2. FEMARA [Suspect]
     Active Substance: LETROZOLE
     Indication: HER2 positive breast cancer
     Route: 048
     Dates: start: 20210724
  3. PERJETA [Suspect]
     Active Substance: PERTUZUMAB
     Indication: HER2 positive breast cancer
     Route: 042
     Dates: start: 20171228
  4. TAXOL [Suspect]
     Active Substance: PACLITAXEL
     Indication: HER2 positive breast cancer
     Dosage: MOST RECENT DOSE ON 16/MAY/2018
     Route: 042
     Dates: start: 20171222
  5. NOLVADEX [Suspect]
     Active Substance: TAMOXIFEN CITRATE
     Indication: HER2 positive breast cancer
     Dosage: MOST RECENT DOSE ON 23/JUL/2021
     Route: 048
     Dates: start: 20180530
  6. GOSERELIN [Suspect]
     Active Substance: GOSERELIN
     Indication: HER2 positive breast cancer
     Dosage: MOST RECENT DOSE ADMINISTERED AT: 12/JAN/2023? FREQUENCY TEXT:OTHER
     Route: 058
     Dates: start: 20180806
  7. METOCLOPRAMIDE HYDROCHLORIDE [Concomitant]
     Active Substance: METOCLOPRAMIDE HYDROCHLORIDE
     Indication: Nausea
     Dosage: ONGOING = CHECKED
     Dates: start: 20210830
  8. SENNA [Concomitant]
     Active Substance: SENNA LEAF\SENNOSIDES\SENNOSIDES A AND B
     Indication: Constipation
     Dosage: ONGOING = CHECKED
     Dates: start: 20210830
  9. DEXAMETHASONE [Concomitant]
     Active Substance: DEXAMETHASONE
     Dosage: ONGOING = CHECKED
     Dates: start: 20210818
  10. DEXAMETHASONE [Concomitant]
     Active Substance: DEXAMETHASONE
     Dosage: ONGOING = NOT CHECKED
     Dates: start: 20210723, end: 20210730
  11. DEXAMETHASONE [Concomitant]
     Active Substance: DEXAMETHASONE
     Dosage: ONGOING = NOT CHECKED
     Dates: start: 20210731, end: 20210817
  12. DEXAMETHASONE [Concomitant]
     Active Substance: DEXAMETHASONE
     Dosage: ONGOING = NOT CHECKED
     Dates: start: 20210719, end: 20210719
  13. ATACAND [Concomitant]
     Active Substance: CANDESARTAN CILEXETIL
     Indication: Hypertension
     Dosage: ONGOING = CHECKED
     Dates: start: 20210617
  14. OMEPRAZOLE [Concomitant]
     Active Substance: OMEPRAZOLE
     Dosage: ONGOING = CHECKED
     Dates: start: 20210723
  15. PANTOPRAZOLE [Concomitant]
     Active Substance: PANTOPRAZOLE
     Dosage: ONGOING = NOT CHECKED
     Dates: start: 20210719, end: 20210719

REACTIONS (1)
  - Headache [Not Recovered/Not Resolved]

NARRATIVE: CASE EVENT DATE: 20210719
